FAERS Safety Report 9409397 (Version 1)
Quarter: 2013Q3

REPORT INFORMATION
  Report Type: Spontaneous
  Country: IT (occurrence: IT)
  Receive Date: 20130719
  Receipt Date: 20130719
  Transmission Date: 20140515
  Serious: Yes (Other)
  Sender: FDA-Public Use
  Company Number: IT-MYLANLABS-2013S1014976

PATIENT
  Age: 76 Year
  Sex: Female

DRUGS (3)
  1. QUETIAPINE FUMARATE [Suspect]
     Indication: SENILE PSYCHOSIS
     Route: 048
     Dates: start: 20130617, end: 20130701
  2. EBIXA [Concomitant]
     Indication: DEMENTIA ALZHEIMER^S TYPE
     Dates: start: 20130521, end: 20130703
  3. RISPERDAL [Concomitant]
     Indication: SENILE PSYCHOSIS
     Dates: start: 20130311, end: 20130621

REACTIONS (3)
  - Presyncope [Recovering/Resolving]
  - Trismus [Recovering/Resolving]
  - Off label use [Recovered/Resolved]
